FAERS Safety Report 8716342 (Version 2)
Quarter: 2013Q4

REPORT INFORMATION
  Report Type: Spontaneous
  Country: US (occurrence: US)
  Receive Date: 20120810
  Receipt Date: 20131101
  Transmission Date: 20140711
  Serious: No
  Sender: FDA-Public Use
  Company Number: US-009507513-1208USA000019

PATIENT
  Age: 8 Year
  Sex: Male

DRUGS (1)
  1. MIRALAX [Suspect]
     Indication: CONSTIPATION
     Dosage: UNK, BID
     Route: 048
     Dates: start: 20120707

REACTIONS (3)
  - Overdose [Recovering/Resolving]
  - Drug administered to patient of inappropriate age [Recovering/Resolving]
  - Off label use [Recovering/Resolving]
